FAERS Safety Report 18567310 (Version 2)
Quarter: 2020Q4

REPORT INFORMATION
  Report Type: Spontaneous
  Country: PL (occurrence: PL)
  Receive Date: 20201201
  Receipt Date: 20201206
  Transmission Date: 20210114
  Serious: Yes (Hospitalization, Other)
  Sender: FDA-Public Use
  Company Number: PL-JNJFOC-20201140401

PATIENT

DRUGS (2)
  1. REMICADE [Suspect]
     Active Substance: INFLIXIMAB
     Indication: PSORIATIC ARTHROPATHY
     Dosage: 5 MG/KG, BW
     Route: 042
     Dates: start: 201708, end: 201906
  2. REMICADE [Suspect]
     Active Substance: INFLIXIMAB
     Indication: PSORIASIS
     Route: 042
     Dates: start: 2017

REACTIONS (2)
  - Cholangiocarcinoma [Unknown]
  - Disease recurrence [Unknown]

NARRATIVE: CASE EVENT DATE: 201910
